FAERS Safety Report 7222650-X (Version None)
Quarter: 2011Q1

REPORT INFORMATION
  Report Type: 
  Country: None (occurrence: None)
  Receive Date: 20110106
  Receipt Date: 20110106
  Transmission Date: 20110831
  Serious: Yes (Other)
  Sender: FDA-Public Use
  Company Number: None

PATIENT
  Age: 74 Year
  Sex: Female

DRUGS (2)
  1. RECLAST [Suspect]
     Indication: OSTEOPOROSIS
     Dosage: 1 DOSE
     Route: 042
     Dates: start: 20100201
  2. INSULIN PUMP [Concomitant]

REACTIONS (4)
  - FATIGUE [None]
  - DIABETES MELLITUS INADEQUATE CONTROL [None]
  - PAIN [None]
  - PAIN IN EXTREMITY [None]
